FAERS Safety Report 15231957 (Version 1)
Quarter: 2018Q3

REPORT INFORMATION
  Report Type: Spontaneous
  Country: US (occurrence: US)
  Receive Date: 20180802
  Receipt Date: 20180802
  Transmission Date: 20181010
  Serious: Yes (Hospitalization)
  Sender: FDA-Public Use
  Company Number: US-GLAXOSMITHKLINE-US2018GSK137660

PATIENT
  Age: 62 Year
  Sex: Female

DRUGS (2)
  1. EPOPROSTENOL. [Suspect]
     Active Substance: EPOPROSTENOL
     Dosage: INCREASED DOSE TITRATION
     Route: 042
  2. EPOPROSTENOL. [Suspect]
     Active Substance: EPOPROSTENOL
     Indication: PULMONARY ARTERIAL HYPERTENSION
     Route: 042

REACTIONS (15)
  - Hypophysitis [Recovering/Resolving]
  - Fatigue [Recovered/Resolved]
  - Muscular weakness [Recovered/Resolved]
  - Pituitary hyperplasia [Recovering/Resolving]
  - Pituitary enlargement [Recovering/Resolving]
  - Hypopituitarism [Recovering/Resolving]
  - Mental status changes [Recovered/Resolved]
  - Headache [Recovered/Resolved]
  - Tachycardia [Recovered/Resolved]
  - Somnolence [Recovered/Resolved]
  - Myalgia [Recovered/Resolved]
  - Hypotension [Recovered/Resolved]
  - Malaise [Recovered/Resolved]
  - Slow speech [Recovered/Resolved]
  - Condition aggravated [Recovered/Resolved]
